FAERS Safety Report 25512781 (Version 3)
Quarter: 2025Q3

REPORT INFORMATION
  Report Type: Spontaneous
  Country: CA (occurrence: CA)
  Receive Date: 20250703
  Receipt Date: 20250828
  Transmission Date: 20251021
  Serious: Yes (Other)
  Sender: PFIZER
  Company Number: CA-PFIZER INC-202400022551

PATIENT
  Age: 82 Year
  Sex: Male
  Weight: 74.8 kg

DRUGS (12)
  1. VYNDAMAX [Suspect]
     Active Substance: TAFAMIDIS
     Indication: Cardiac amyloidosis
     Dosage: 61 MG, 1X/DAY
     Route: 048
     Dates: start: 20230705
  2. APIXABAN [Concomitant]
     Active Substance: APIXABAN
     Dosage: 1 DF(2.5 MG), 2X/DAY
     Route: 065
  3. EZETIMIBE [Concomitant]
     Active Substance: EZETIMIBE
     Dosage: 10 MG, 1X/DAY
     Route: 065
  4. IRON [Concomitant]
     Active Substance: IRON
     Dosage: 11 MG, 1X/DAY
     Route: 065
  5. LASIX [Concomitant]
     Active Substance: FUROSEMIDE
     Route: 065
  6. METOPROLOL FUMARATE [Concomitant]
     Active Substance: METOPROLOL FUMARATE
     Dosage: 25 MG, 2X/DAY (REDUCED TO 25 MG TWICE DAILY)
  7. METOPROLOL FUMARATE [Concomitant]
     Active Substance: METOPROLOL FUMARATE
     Dosage: 50 MG, 2X/DAY
     Route: 065
  8. VITAMINS NOS [Concomitant]
     Active Substance: VITAMINS
  9. ROSUVASTATIN [Concomitant]
     Active Substance: ROSUVASTATIN
     Dosage: 10 MG, 1X/DAY
     Route: 065
  10. SPIRONOLACTONE [Concomitant]
     Active Substance: SPIRONOLACTONE
     Dosage: 1 DF,(12.5 MG) 1X/DAY
     Route: 065
  11. TAMSULOSIN [Concomitant]
     Active Substance: TAMSULOSIN
     Dosage: 1 DF,(0.4 MG) 1X/DAY
     Route: 065
  12. VALSARTAN [Concomitant]
     Active Substance: VALSARTAN
     Dosage: 51 MG, 2X/DAY
     Route: 065

REACTIONS (4)
  - Drug effect less than expected [Unknown]
  - Cardiac failure congestive [Not Recovered/Not Resolved]
  - Oedema peripheral [Recovering/Resolving]
  - Cough [Recovered/Resolved]

NARRATIVE: CASE EVENT DATE: 20231203
